FAERS Safety Report 9451714 (Version 4)
Quarter: 2013Q4

REPORT INFORMATION
  Report Type: Spontaneous
  Country: US (occurrence: US)
  Receive Date: 20130812
  Receipt Date: 20131024
  Transmission Date: 20140711
  Serious: No
  Sender: FDA-Public Use
  Company Number: US-009507513-1308USA003980

PATIENT
  Age: 25 Year
  Sex: Female
  Weight: 42.4 kg

DRUGS (1)
  1. IMPLANON [Suspect]
     Indication: CONTRACEPTION
     Dosage: 1 ROD
     Route: 059
     Dates: start: 20121120

REACTIONS (5)
  - Device difficult to use [Unknown]
  - Medical device complication [Unknown]
  - Device difficult to use [Unknown]
  - Product quality issue [Unknown]
  - Drug dose omission [Unknown]
